FAERS Safety Report 25681415 (Version 2)
Quarter: 2025Q3

REPORT INFORMATION
  Report Type: Report from Study
  Country: US (occurrence: US)
  Receive Date: 20250814
  Receipt Date: 20250912
  Transmission Date: 20251021
  Serious: Yes (Hospitalization, Other)
  Sender: TAKEDA
  Company Number: US-TAKEDA-2025TUS071987

PATIENT
  Age: 85 Year
  Sex: Male
  Weight: 66.667 kg

DRUGS (1)
  1. FRUQUINTINIB [Suspect]
     Active Substance: FRUQUINTINIB
     Indication: Colon cancer

REACTIONS (3)
  - Colon cancer [Unknown]
  - Urinary tract infection [Recovering/Resolving]
  - Costochondritis [Unknown]

NARRATIVE: CASE EVENT DATE: 20250729
